FAERS Safety Report 15011248 (Version 6)
Quarter: 2018Q3

REPORT INFORMATION
  Report Type: Spontaneous
  Country: US (occurrence: US)
  Receive Date: 20180614
  Receipt Date: 20180924
  Transmission Date: 20181010
  Serious: No
  Sender: FDA-Public Use
  Company Number: US-SA-2018SA133134

PATIENT
  Age: 59 Year
  Sex: Female

DRUGS (1)
  1. AUBAGIO [Suspect]
     Active Substance: TERIFLUNOMIDE
     Indication: MULTIPLE SCLEROSIS
     Dosage: 14 MG,QD
     Route: 048
     Dates: start: 20180325

REACTIONS (9)
  - Hypoaesthesia [Unknown]
  - Drug ineffective [Unknown]
  - Chills [Unknown]
  - Balance disorder [Unknown]
  - Dizziness [Unknown]
  - Muscle spasms [Unknown]
  - Muscular weakness [Unknown]
  - Limb discomfort [Not Recovered/Not Resolved]
  - Pain in extremity [Unknown]

NARRATIVE: CASE EVENT DATE: 20180501
